FAERS Safety Report 21043349 (Version 1)
Quarter: 2022Q3

REPORT INFORMATION
  Report Type: Spontaneous
  Country: CN (occurrence: CN)
  Receive Date: 20220705
  Receipt Date: 20220705
  Transmission Date: 20221027
  Serious: Yes (Other)
  Sender: FDA-Public Use
  Company Number: CN-PFIZER INC-PV202200013532

PATIENT
  Age: 12 Year
  Sex: Male
  Weight: 50.2 kg

DRUGS (12)
  1. CYTARABINE [Suspect]
     Active Substance: CYTARABINE
     Indication: Chemotherapy
     Dosage: 0.013 G, 1X/DAY
     Route: 041
     Dates: start: 202204, end: 202204
  2. CYTARABINE [Suspect]
     Active Substance: CYTARABINE
     Indication: Acute myeloid leukaemia
     Dosage: 0.013 G, 1X/DAY
     Route: 041
     Dates: start: 202205, end: 202205
  3. CYTARABINE [Suspect]
     Active Substance: CYTARABINE
     Dosage: 0.036 G, 1X/DAY
     Route: 037
     Dates: start: 20220610, end: 20220610
  4. CYTARABINE [Suspect]
     Active Substance: CYTARABINE
     Dosage: 4.29 G, 2X/DAY (Q12 H } 3 H)
     Route: 041
     Dates: start: 20220611, end: 20220614
  5. METHOTREXATE SODIUM [Suspect]
     Active Substance: METHOTREXATE SODIUM
     Indication: Chemotherapy
     Dosage: 12 MG, 1X/DAY
     Route: 037
     Dates: start: 202204, end: 202204
  6. METHOTREXATE SODIUM [Suspect]
     Active Substance: METHOTREXATE SODIUM
     Indication: Acute myeloid leukaemia
     Dosage: 12 MG, 1X/DAY
     Route: 037
     Dates: start: 202205, end: 202205
  7. METHOTREXATE SODIUM [Suspect]
     Active Substance: METHOTREXATE SODIUM
     Dosage: 12 MG, 1X/DAY
     Route: 037
     Dates: start: 20220610, end: 20220610
  8. OMACETAXINE MEPESUCCINATE [Concomitant]
     Active Substance: OMACETAXINE MEPESUCCINATE
     Indication: Chemotherapy
     Dosage: 4.3 G, 1X/DAY (}3 H)
     Route: 041
     Dates: start: 20220611, end: 20220615
  9. DEXAMETHASONE SODIUM PHOSPHATE [Concomitant]
     Active Substance: DEXAMETHASONE SODIUM PHOSPHATE
     Dosage: 5 MG, SINGLE
     Route: 037
     Dates: start: 20220610, end: 20220610
  10. VITAMIN B6 [Concomitant]
     Active Substance: PYRIDOXINE HYDROCHLORIDE
     Indication: Prophylaxis
     Dosage: UNK
     Dates: start: 202206
  11. TOBRAMYCIN AND DEXAMETHASONE [Concomitant]
     Active Substance: DEXAMETHASONE\TOBRAMYCIN
     Indication: Prophylaxis
     Dosage: UNK
     Dates: start: 202206
  12. DASATINIB [Concomitant]
     Active Substance: DASATINIB
     Route: 048

REACTIONS (3)
  - Liver injury [Unknown]
  - Alanine aminotransferase increased [Unknown]
  - Aspartate aminotransferase increased [Unknown]

NARRATIVE: CASE EVENT DATE: 20220615
